FAERS Safety Report 4766193-1 (Version None)
Quarter: 2005Q3

REPORT INFORMATION
  Report Type: 
  Country: None (occurrence: None)
  Receive Date: 20050909
  Receipt Date: 20050826
  Transmission Date: 20060218
  Serious: Yes (Other)
  Sender: FDA-Public Use
  Company Number: 12158

PATIENT
  Age: 24 Month
  Sex: Male

DRUGS (3)
  1. VELBE [Suspect]
     Indication: MALIGNANT HISTIOCYTOSIS
     Dosage: 6 MG/M2
  2. METHOTREXATE [Concomitant]
  3. DELTACORTENE [Concomitant]

REACTIONS (1)
  - EYELID PTOSIS [None]
